FAERS Safety Report 16031994 (Version 1)
Quarter: 2019Q1

REPORT INFORMATION
  Report Type: Other
  Country: None (occurrence: US)
  Receive Date: 20190304
  Receipt Date: 20190304
  Transmission Date: 20190418
  Serious: Yes (Death, Hospitalization)
  Sender: FDA-Public Use
  Company Number: US-MEDAC PHARMA, INC.-2063525

PATIENT
  Sex: Male

DRUGS (5)
  1. METHOTREXATE. [Suspect]
     Active Substance: METHOTREXATE
  2. ONCASPAR [Suspect]
     Active Substance: PEGASPARGASE
  3. DEXAMETHASONE. [Suspect]
     Active Substance: DEXAMETHASONE
  4. MITOXANTRONE HYDROCHLORIDE. [Suspect]
     Active Substance: MITOXANTRONE HYDROCHLORIDE
  5. VINCRISTINE SULFATE. [Suspect]
     Active Substance: VINCRISTINE SULFATE

REACTIONS (7)
  - Fungal infection [Unknown]
  - Hypovolaemic shock [Fatal]
  - Blood pressure decreased [Unknown]
  - Sepsis [Fatal]
  - Mental status changes [Unknown]
  - Cardio-respiratory arrest [Fatal]
  - Respiratory distress [Unknown]
